FAERS Safety Report 14984703 (Version 1)
Quarter: 2018Q2

REPORT INFORMATION
  Report Type: Spontaneous
  Country: US (occurrence: US)
  Receive Date: 20180518
  Receipt Date: 20180518
  Transmission Date: 20180711
  Serious: No
  Sender: FDA-Public Use
  Company Number: None

PATIENT
  Age: 71 Year
  Sex: Female
  Weight: 66.6 kg

DRUGS (2)
  1. ERIVEDGE [Concomitant]
     Active Substance: VISMODEGIB
     Dates: start: 20170807, end: 20180403
  2. ERIVEDGE [Suspect]
     Active Substance: VISMODEGIB
     Indication: BASAL CELL CARCINOMA
     Route: 048
     Dates: start: 20170807, end: 20180203

REACTIONS (1)
  - Weight decreased [None]

NARRATIVE: CASE EVENT DATE: 20180518
